FAERS Safety Report 19349789 (Version 2)
Quarter: 2021Q3

REPORT INFORMATION
  Report Type: Spontaneous
  Country: US (occurrence: US)
  Receive Date: 20210531
  Receipt Date: 20210809
  Transmission Date: 20211014
  Serious: No
  Sender: FDA-Public Use
  Company Number: US-TEVA-2021-US-1916668

PATIENT
  Age: 59 Year
  Sex: Female

DRUGS (1)
  1. AMPHETAMINE W/DEXTROAMPHETAMINE [Suspect]
     Active Substance: AMPHETAMINE SULFATE\DEXTROAMPHETAMINE
     Indication: ATTENTION DEFICIT HYPERACTIVITY DISORDER
     Route: 065

REACTIONS (8)
  - Crying [Unknown]
  - Product quality issue [Unknown]
  - Insomnia [Unknown]
  - Anxiety [Unknown]
  - Drug ineffective [Unknown]
  - Disturbance in attention [Unknown]
  - Aversion [Unknown]
  - Emotional disorder [Unknown]

NARRATIVE: CASE EVENT DATE: 202105
